FAERS Safety Report 8456137 (Version 3)
Quarter: 2013Q4

REPORT INFORMATION
  Report Type: Spontaneous
  Country: US (occurrence: US)
  Receive Date: 20120313
  Receipt Date: 20131009
  Transmission Date: 20140711
  Serious: Yes (Other)
  Sender: FDA-Public Use
  Company Number: US-ROCHE-1047372

PATIENT
  Age: 30 Year
  Sex: Female
  Weight: 59.02 kg

DRUGS (2)
  1. ACCUTANE [Suspect]
     Indication: ACNE
     Route: 065
     Dates: start: 1997, end: 2001
  2. ACCUTANE [Suspect]
     Route: 065
     Dates: start: 1999, end: 2000

REACTIONS (18)
  - Colitis ulcerative [Unknown]
  - Inflammatory bowel disease [Unknown]
  - Injury [Unknown]
  - Depression [Unknown]
  - Polyp [Unknown]
  - Anal fissure [Unknown]
  - Irritable bowel syndrome [Unknown]
  - Sinusitis [Unknown]
  - Pharyngitis [Unknown]
  - Otitis media [Unknown]
  - Urinary tract infection [Unknown]
  - Bronchitis [Recovering/Resolving]
  - Laryngitis [Unknown]
  - Pneumonia [Recovering/Resolving]
  - Rhinitis allergic [Unknown]
  - Conjunctivitis [Unknown]
  - Insomnia [Unknown]
  - Blood cholesterol increased [Unknown]
